FAERS Safety Report 4543068-4 (Version None)
Quarter: 2004Q4

REPORT INFORMATION
  Report Type: 
  Country: None (occurrence: None)
  Receive Date: 20041229
  Receipt Date: 20041229
  Transmission Date: 20050328
  Serious: Yes (Other)
  Sender: FDA-Public Use
  Company Number: None

PATIENT
  Age: 46 Year
  Sex: Female
  Weight: 53.5244 kg

DRUGS (2)
  1. CELEXA [Suspect]
     Indication: ANXIETY
     Dosage: 30-40 MG.  ONCE DAILY  ORAL
     Route: 048
     Dates: start: 20040401, end: 20041215
  2. CELEXA [Suspect]
     Indication: DEPRESSION
     Dosage: 30-40 MG.  ONCE DAILY  ORAL
     Route: 048
     Dates: start: 20040401, end: 20041215

REACTIONS (12)
  - ANXIETY [None]
  - APATHY [None]
  - CHILLS [None]
  - CRYING [None]
  - DEPRESSION [None]
  - DRUG EFFECT DECREASED [None]
  - DRUG WITHDRAWAL SYNDROME [None]
  - EMOTIONAL DISORDER [None]
  - INFLUENZA [None]
  - PYREXIA [None]
  - SEDATION [None]
  - SUICIDAL IDEATION [None]
